FAERS Safety Report 7576960-7 (Version None)
Quarter: 2011Q2

REPORT INFORMATION
  Report Type: 
  Country: None (occurrence: None)
  Receive Date: 20110525
  Receipt Date: 20110411
  Transmission Date: 20111010
  Serious: No
  Sender: FDA-Public Use
  Company Number: 325708

PATIENT
  Age: 70 Year
  Sex: Male

DRUGS (5)
  1. VICTOZA [Suspect]
     Indication: TYPE 2 DIABETES MELLITUS
     Dosage: SUBCUTANEOUS
     Route: 058
     Dates: start: 20110101
  2. GLUCOPHAGE [Concomitant]
  3. ZETIA [Concomitant]
  4. GLIPIZIDE [Concomitant]
  5. ASPIRIN [Concomitant]

REACTIONS (1)
  - NAUSEA [None]
